FAERS Safety Report 6898370-8 (Version None)
Quarter: 2010Q3

REPORT INFORMATION
  Report Type: 
  Country: None (occurrence: None)
  Receive Date: 20100802
  Receipt Date: 20071015
  Transmission Date: 20110219
  Serious: No
  Sender: FDA-Public Use
  Company Number: US-PFIZER INC-2007086165

PATIENT
  Sex: Female
  Weight: 72.7 kg

DRUGS (3)
  1. LYRICA [Suspect]
     Indication: FIBROMYALGIA
     Dates: start: 20070801
  2. CELEBREX [Concomitant]
     Indication: OSTEOPOROSIS
  3. NEXIUM [Concomitant]
     Indication: GASTRIC DISORDER

REACTIONS (5)
  - ALOPECIA [None]
  - BLISTER [None]
  - BLOOD CHOLESTEROL INCREASED [None]
  - DIZZINESS [None]
  - PRURITUS [None]
